FAERS Safety Report 4505220-3 (Version None)
Quarter: 2004Q4

REPORT INFORMATION
  Report Type: 
  Country: None (occurrence: None)
  Receive Date: 20041015
  Receipt Date: 20040610
  Transmission Date: 20050328
  Serious: Yes (Hospitalization)
  Sender: FDA-Public Use
  Company Number: 2004039301

PATIENT
  Sex: Female
  Weight: 43.0917 kg

DRUGS (8)
  1. NEURONTIN [Suspect]
     Indication: PAIN
  2. OXYCODONE (OXYCODONE) [Concomitant]
  3. ATENOLOL [Concomitant]
  4. SPIRONOLACTONE [Concomitant]
  5. TEMAZEPAM [Concomitant]
  6. MELATONIN (MELATONIN) [Concomitant]
  7. FUROSEMIDE [Concomitant]
  8. FLUOXETINE HYDROCHLORIDE [Concomitant]

REACTIONS (3)
  - DEPRESSION [None]
  - MUSCLE TWITCHING [None]
  - SUICIDAL IDEATION [None]
